FAERS Safety Report 17999648 (Version 2)
Quarter: 2020Q3

REPORT INFORMATION
  Report Type: Spontaneous
  Country: IL (occurrence: IL)
  Receive Date: 20200709
  Receipt Date: 20200714
  Transmission Date: 20201103
  Serious: Yes (Hospitalization, Other)
  Sender: FDA-Public Use
  Company Number: IL-PFIZER INC-2020260698

PATIENT
  Age: 2 Month
  Sex: Male

DRUGS (1)
  1. SULFASALAZINE. [Suspect]
     Active Substance: SULFASALAZINE
     Indication: COLITIS ULCERATIVE
     Dosage: 3 G, DAILY (MOTHER HAD BEEN TREATED CONTINUOUSLY OVER A PERIOD OF 5 YEARS )
     Route: 063

REACTIONS (2)
  - Exposure via breast milk [Unknown]
  - Diarrhoea haemorrhagic [Recovered/Resolved]
